FAERS Safety Report 19778926 (Version 2)
Quarter: 2021Q4

REPORT INFORMATION
  Report Type: Spontaneous
  Country: US (occurrence: US)
  Receive Date: 20210902
  Receipt Date: 20211118
  Transmission Date: 20220303
  Serious: Yes (Other)
  Sender: FDA-Public Use
  Company Number: US-AMGEN-USASP2021132705

PATIENT
  Age: 83 Year
  Sex: Male

DRUGS (23)
  1. XGEVA [Suspect]
     Active Substance: DENOSUMAB
     Indication: Bone loss
     Dosage: UNK
     Route: 065
     Dates: end: 202102
  2. XTANDI [Suspect]
     Active Substance: ENZALUTAMIDE
     Indication: Prostate cancer
     Dosage: 160 MILLIGRAM, QD
     Route: 048
  3. XTANDI [Suspect]
     Active Substance: ENZALUTAMIDE
     Indication: Type IIa hyperlipidaemia
     Dosage: 80 MILLIGRAM, QD
     Route: 048
  4. PRALUENT [Concomitant]
     Active Substance: ALIROCUMAB
     Dosage: UNK
     Route: 065
  5. CALCIUM CARBONATE [Concomitant]
     Active Substance: CALCIUM CARBONATE
     Dosage: UNK
  6. FIBER [Concomitant]
     Active Substance: PSYLLIUM HUSK
     Dosage: UNK
  7. INDAPAMIDE [Concomitant]
     Active Substance: INDAPAMIDE
     Dosage: 2.5 MILLIGRAM
  8. METOPROLOL TARTRATE [Concomitant]
     Active Substance: METOPROLOL TARTRATE
     Dosage: 25 MILLIGRAM
  9. VITAMIN D3 [Concomitant]
     Active Substance: CHOLECALCIFEROL
  10. GABAPENTIN [Concomitant]
     Active Substance: GABAPENTIN
     Dosage: 300 MILLIGRAM
  11. TOBRAMYCIN [Concomitant]
     Active Substance: TOBRAMYCIN
     Dosage: UNK
  12. SERTRALINE [Concomitant]
     Active Substance: SERTRALINE HYDROCHLORIDE
     Dosage: UNK
  13. PREDNISOLONE ACETATE [Concomitant]
     Active Substance: PREDNISOLONE ACETATE
     Dosage: UNK
  14. ZOLOFT [Concomitant]
     Active Substance: SERTRALINE HYDROCHLORIDE
     Dosage: 50 MILLIGRAM
  15. ALPRAZOLAM [Concomitant]
     Active Substance: ALPRAZOLAM
     Dosage: 0.5 MILLIGRAM
  16. OXYCODONE [Concomitant]
     Active Substance: OXYCODONE
     Dosage: UNK
  17. METAMUCIL [Concomitant]
     Active Substance: PLANTAGO SEED
     Dosage: UNK
  18. BETAMETHASONE\CLOTRIMAZOLE [Concomitant]
     Active Substance: BETAMETHASONE\CLOTRIMAZOLE
     Dosage: UNK
  19. DICLOFENAC [Concomitant]
     Active Substance: DICLOFENAC
     Dosage: 100 MILLIGRAM
  20. LUPRON [Concomitant]
     Active Substance: LEUPROLIDE ACETATE
     Dosage: UNK
     Dates: start: 2015
  21. METHYLPREDNISOLONE [Concomitant]
     Active Substance: METHYLPREDNISOLONE
     Dosage: UNK
  22. DICLOFENAC SODIUM [Concomitant]
     Active Substance: DICLOFENAC SODIUM
     Dosage: 75 MILLIGRAM
  23. PENICILLIN [Concomitant]
     Active Substance: PENICILLIN

REACTIONS (10)
  - Osteomyelitis [Unknown]
  - Osteonecrosis of jaw [Unknown]
  - Cataract [Recovering/Resolving]
  - Rash [Recovered/Resolved]
  - Urinary incontinence [Unknown]
  - Hot flush [Not Recovered/Not Resolved]
  - Fatigue [Recovering/Resolving]
  - Back pain [Unknown]
  - Arthralgia [Unknown]
  - Blood calcium decreased [Unknown]

NARRATIVE: CASE EVENT DATE: 20191001
